FAERS Safety Report 9396298 (Version 1)
Quarter: 2013Q3

REPORT INFORMATION
  Report Type: Spontaneous
  Country: GB (occurrence: GB)
  Receive Date: 20130711
  Receipt Date: 20130711
  Transmission Date: 20140515
  Serious: Yes (Life-Threatening, Hospitalization, Disabling, Other)
  Sender: FDA-Public Use
  Company Number: GB-WATSON-2013-07373

PATIENT
  Age: 25 Year
  Sex: Female
  Weight: 52 kg

DRUGS (6)
  1. QUETIAPINE (UNKNOWN) [Suspect]
     Indication: SCHIZOPHRENIA
     Dosage: UNK
     Route: 065
  2. MIRTAZAPINE [Concomitant]
     Indication: PRODUCT USED FOR UNKNOWN INDICATION
     Dosage: UNK
     Route: 065
  3. CODEINE [Concomitant]
     Indication: PRODUCT USED FOR UNKNOWN INDICATION
     Dosage: UNK
     Route: 065
  4. PROCYCLIDINE [Concomitant]
     Indication: PRODUCT USED FOR UNKNOWN INDICATION
     Dosage: UNK
     Route: 065
  5. CLARITHROMYCIN [Concomitant]
     Indication: PRODUCT USED FOR UNKNOWN INDICATION
     Dosage: UNK SHORT COURSE
     Route: 065
  6. PEVARYL                            /00418501/ [Concomitant]
     Indication: PRODUCT USED FOR UNKNOWN INDICATION
     Dosage: UNK
     Route: 065

REACTIONS (5)
  - Myositis [Recovering/Resolving]
  - Muscle necrosis [Recovering/Resolving]
  - Pain in extremity [Unknown]
  - Rhabdomyolysis [Unknown]
  - Renal failure acute [Unknown]
